FAERS Safety Report 10797156 (Version 2)
Quarter: 2022Q2

REPORT INFORMATION
  Report Type: Spontaneous
  Country: US (occurrence: US)
  Receive Date: 20150216
  Receipt Date: 20220401
  Transmission Date: 20220720
  Serious: Yes (Hospitalization, Disabling, Other)
  Sender: FDA-Public Use
  Company Number: US-TEVA-461923USA

PATIENT
  Age: 57 Year
  Sex: Female
  Weight: 59.4 kg

DRUGS (32)
  1. ALENDRONATE SODIUM [Suspect]
     Active Substance: ALENDRONATE SODIUM
     Indication: Osteopenia
     Route: 048
     Dates: start: 20100729
  2. ALENDRONATE SODIUM [Suspect]
     Active Substance: ALENDRONATE SODIUM
     Route: 048
     Dates: start: 20080215, end: 20080906
  3. ALENDRONATE SODIUM [Suspect]
     Active Substance: ALENDRONATE SODIUM
     Route: 048
     Dates: start: 20101210, end: 20110405
  4. ALENDRONATE SODIUM [Suspect]
     Active Substance: ALENDRONATE SODIUM
     Indication: Osteopenia
     Route: 048
     Dates: start: 20081125
  5. ALENDRONATE SODIUM [Suspect]
     Active Substance: ALENDRONATE SODIUM
     Route: 048
     Dates: start: 20090217, end: 20091223
  6. FOSAMAX [Suspect]
     Active Substance: ALENDRONATE SODIUM
     Indication: Osteopenia
     Dosage: 10 MILLIGRAM DAILY; TAKE IN THE MORNING WITH FULL GLASS OF WATER ON AN EMPTY STOMACH AND DO NOT TAKE
     Route: 048
     Dates: start: 20030924, end: 20061114
  7. FOSAMAX [Suspect]
     Active Substance: ALENDRONATE SODIUM
     Dosage: 10 MILLIGRAM DAILY; TAKE IN THE MORNING WITH FULL GLASS OF WATER ON AN EMPTY STOMACH AND DO NOT TAKE
     Route: 048
     Dates: start: 20070323, end: 20071117
  8. FOSAMAX [Suspect]
     Active Substance: ALENDRONATE SODIUM
     Dosage: 10 MILLIGRAM DAILY; TAKE IN THE MORNING WITH FULL GLASS OF WATER ON AN EMPTY STOMACH AND DO NOT TAKE
     Route: 048
     Dates: end: 200802
  9. FOSAMAX [Suspect]
     Active Substance: ALENDRONATE SODIUM
     Dosage: 10 MILLIGRAM DAILY; TAKE IN THE MORNING WITH FULL GLASS OF WATER ON AN EMPTY STOMACH AND DO NOT TAKE
     Route: 048
     Dates: end: 20120305
  10. VITAMIN D [Concomitant]
     Active Substance: VITAMIN D NOS
     Indication: Vitamin D deficiency
     Dosage: 1000 IU (INTERNATIONAL UNIT) DAILY;
     Route: 048
     Dates: start: 2005
  11. calcium citrate/vitamin D3 [Concomitant]
     Route: 048
  12. CELEBREX [Concomitant]
     Active Substance: CELECOXIB
     Indication: Arthralgia
     Dosage: 400 MILLIGRAM DAILY;
     Route: 048
     Dates: start: 2009
  13. FLAXSEED [Concomitant]
     Active Substance: FLAX SEED
     Dosage: NON-DRUG; COMBO ROUTE
     Route: 048
  14. FLONASE [Concomitant]
     Active Substance: FLUTICASONE PROPIONATE
     Dosage: 100 MICROGRAM DAILY; 2 PUFFS TO EACH NOSTRIL DAILY AS NEEDED
     Route: 045
  15. VITAMINS [Concomitant]
     Active Substance: VITAMINS
     Route: 048
  16. BACTROBAN [Concomitant]
     Active Substance: MUPIROCIN\MUPIROCIN CALCIUM
     Route: 061
  17. PRILOSEC [Concomitant]
     Active Substance: OMEPRAZOLE MAGNESIUM
     Route: 048
  18. REQUIP [Concomitant]
     Active Substance: ROPINIROLE HYDROCHLORIDE
     Dosage: AT NIGHT
     Route: 048
  19. ADEMETIONINE [Concomitant]
     Active Substance: ADEMETIONINE
     Route: 048
  20. ZOLOFT [Concomitant]
     Active Substance: SERTRALINE HYDROCHLORIDE
     Indication: Depression
     Route: 048
     Dates: start: 2003
  21. ZOCOR [Concomitant]
     Active Substance: SIMVASTATIN
     Dosage: AT NIGHT
     Route: 048
  22. TYLENOL [Concomitant]
     Active Substance: ACETAMINOPHEN
     Dates: end: 20120305
  23. PREMPRO [Concomitant]
     Active Substance: ESTROGENS, CONJUGATED\MEDROXYPROGESTERONE ACETATE
     Dosage: 0.3/1.5MG
     Route: 048
     Dates: start: 2002
  24. CHONDROITIN SULFATE A\GLUCOSAMINE [Concomitant]
     Active Substance: CHONDROITIN SULFATE A\GLUCOSAMINE
     Route: 048
  25. ANCEF [Concomitant]
     Active Substance: CEFAZOLIN SODIUM
     Dosage: ON CALL TO OR
     Route: 042
  26. CELECOXIB [Concomitant]
     Active Substance: CELECOXIB
     Dosage: 400 MILLIGRAM DAILY;
     Route: 048
  27. CYANOCOBALAMIN [Concomitant]
     Active Substance: CYANOCOBALAMIN
     Dosage: ONCE
     Route: 030
  28. NASALIDE [Concomitant]
     Active Substance: FLUNISOLIDE
     Route: 045
  29. HYDROMORPHONE [Concomitant]
     Active Substance: HYDROMORPHONE
     Dosage: ONCE
     Route: 042
  30. ROPINIROLE [Concomitant]
     Active Substance: ROPINIROLE
     Dosage: 2 MILLIGRAM DAILY; AT NIGHT
     Route: 048
  31. SERTRALINE [Concomitant]
     Active Substance: SERTRALINE HYDROCHLORIDE
     Dosage: 100 MILLIGRAM DAILY;
     Route: 048
     Dates: start: 2007
  32. SIMVASTATIN [Concomitant]
     Active Substance: SIMVASTATIN
     Dosage: 40 MILLIGRAM DAILY; AT NIGHT
     Route: 048
     Dates: start: 2010

REACTIONS (5)
  - Fall [Recovered/Resolved]
  - Femur fracture [Recovered/Resolved]
  - Bone disorder [Unknown]
  - Low turnover osteopathy [Unknown]
  - Anaemia postoperative [Recovered/Resolved]

NARRATIVE: CASE EVENT DATE: 20120227
